FAERS Safety Report 4338613-8 (Version None)
Quarter: 2004Q2

REPORT INFORMATION
  Report Type: 
  Country: None (occurrence: None)
  Receive Date: 20040409
  Receipt Date: 20040330
  Transmission Date: 20050107
  Serious: Yes (Hospitalization, Other)
  Sender: FDA-Public Use
  Company Number: USA-2003-0006882

PATIENT
  Age: 40 Year
  Sex: Male
  Weight: 79.4 kg

DRUGS (18)
  1. OXYCONTIN [Suspect]
     Indication: PAIN
     Dosage: SEE IMAGE
     Route: 048
     Dates: start: 20000101, end: 20020318
  2. OXYCONTIN [Suspect]
     Indication: PAIN
     Dosage: SEE IMAGE
     Route: 048
     Dates: start: 19980101
  3. ALCOHOL (ETHANOL) [Suspect]
     Dosage: DAILY, ORAL
     Route: 048
  4. PERCOCET [Suspect]
     Indication: PAIN
     Dosage: 10 MG, Q4-6H PRN, ORAL
     Route: 048
  5. OXYCODONE HCL [Concomitant]
  6. DOCUSATE SODIUM, SENNOSIDE A+B [Concomitant]
  7. WELLBUTRIN SR [Concomitant]
  8. ZOLOFT [Concomitant]
  9. TRIAVIL (AMITRIPTYLINE HYDROCHLORIDE, PERPHENAZINE) [Concomitant]
  10. SONATA [Concomitant]
  11. CIPRO [Concomitant]
  12. VALIUM [Concomitant]
  13. XANAX [Concomitant]
  14. VICODIN [Concomitant]
  15. LORCET-HD [Concomitant]
  16. ZANTAC [Concomitant]
  17. ALBUTEROL [Concomitant]
  18. PEPCID [Concomitant]

REACTIONS (37)
  - AMNESIA [None]
  - ANXIETY [None]
  - BURNING SENSATION [None]
  - CHEST PAIN [None]
  - CHILLS [None]
  - CONSTIPATION [None]
  - DECREASED APPETITE [None]
  - DEPRESSION [None]
  - DIARRHOEA [None]
  - DRUG DEPENDENCE [None]
  - DRUG DETOXIFICATION [None]
  - DRUG TOLERANCE [None]
  - DRUG WITHDRAWAL SYNDROME [None]
  - DYSPEPSIA [None]
  - ERECTILE DYSFUNCTION [None]
  - EXCORIATION [None]
  - HAND FRACTURE [None]
  - HEADACHE [None]
  - HYPERHIDROSIS [None]
  - HYPOTENSION [None]
  - INSOMNIA [None]
  - INTENTIONAL MISUSE [None]
  - IRRITABILITY [None]
  - LIBIDO DECREASED [None]
  - LIPOMA [None]
  - MOOD SWINGS [None]
  - MUSCLE TIGHTNESS [None]
  - NAUSEA [None]
  - NECK PAIN [None]
  - NIGHTMARE [None]
  - OEDEMA PERIPHERAL [None]
  - PAIN EXACERBATED [None]
  - PALPITATIONS [None]
  - POLYSUBSTANCE ABUSE [None]
  - REFUSAL OF TREATMENT BY PATIENT [None]
  - URINARY RETENTION [None]
  - VOMITING [None]
